FAERS Safety Report 8439186-0 (Version None)
Quarter: 2012Q2

REPORT INFORMATION
  Report Type: 
  Country: None (occurrence: None)
  Receive Date: 20120615
  Receipt Date: 20120607
  Transmission Date: 20120825
  Serious: Yes (Other)
  Sender: FDA-Public Use
  Company Number: JP-ASTELLAS-2012JP005249

PATIENT
  Age: 83 Year
  Sex: Female

DRUGS (1)
  1. VESICARE [Suspect]
     Dosage: UNK
     Route: 048
     Dates: end: 20111201

REACTIONS (1)
  - DEMENTIA [None]
